FAERS Safety Report 5523179-7 (Version None)
Quarter: 2007Q4

REPORT INFORMATION
  Report Type: 
  Country: None (occurrence: None)
  Receive Date: 20071121
  Receipt Date: 20071114
  Transmission Date: 20080405
  Serious: Yes (Hospitalization)
  Sender: FDA-Public Use
  Company Number: FR-BAXTER-2007BH006387

PATIENT
  Age: 4 Year
  Sex: Female
  Weight: 18 kg

DRUGS (3)
  1. GAMMAGARD LIQUID [Suspect]
     Indication: IDIOPATHIC THROMBOCYTOPENIC PURPURA
     Dosage: DOSE UNIT:UNKNOWN
     Route: 042
     Dates: start: 20070716, end: 20070716
  2. POLARAMINE [Concomitant]
     Indication: PREMEDICATION
     Dates: start: 20070716, end: 20070716
  3. SOLU-MEDROL [Concomitant]
     Indication: PREMEDICATION
     Dates: start: 20070716, end: 20070716

REACTIONS (2)
  - COUGH [None]
  - EYELID OEDEMA [None]
